FAERS Safety Report 6616581-3 (Version None)
Quarter: 2010Q1

REPORT INFORMATION
  Report Type: 
  Country: None (occurrence: None)
  Receive Date: 20100305
  Receipt Date: 20100223
  Transmission Date: 20100710
  Serious: Yes (Other)
  Sender: FDA-Public Use
  Company Number: US-PFIZER INC-2010023626

PATIENT
  Sex: Male
  Weight: 32.2 kg

DRUGS (1)
  1. GENOTROPIN [Suspect]
     Indication: BODY HEIGHT BELOW NORMAL
     Dosage: 1.2 MG, 1X/DAY
     Dates: start: 20090901, end: 20100201

REACTIONS (3)
  - MALAISE [None]
  - PALPITATIONS [None]
  - PERIPHERAL COLDNESS [None]
